FAERS Safety Report 8217264 (Version 4)
Quarter: 2012Q4

REPORT INFORMATION
  Report Type: 
  Country: CA (occurrence: CA)
  Receive Date: 20111101
  Receipt Date: 20121031
  Transmission Date: 20130627
  Serious: Yes (Other)
  Sender: FDA-Public Use
  Company Number: PHHY2011CA95294

PATIENT
  Age: 41 Year
  Sex: Female

DRUGS (2)
  1. ZOMETA [Suspect]
     Indication: BREAST CANCER METASTATIC
     Dosage: 4 mg, once in a month
     Route: 042
     Dates: start: 20110314
  2. ZOMETA [Suspect]
     Dosage: 4 mg, UNK
     Route: 042
     Dates: start: 20121026

REACTIONS (4)
  - Foot fracture [Recovering/Resolving]
  - Pain in extremity [Unknown]
  - Bone lesion [Unknown]
  - Injection site swelling [Recovering/Resolving]
